FAERS Safety Report 16133793 (Version 2)
Quarter: 2019Q2

REPORT INFORMATION
  Report Type: Spontaneous
  Country: US (occurrence: US)
  Receive Date: 20190329
  Receipt Date: 20190423
  Transmission Date: 20190711
  Serious: No
  Sender: FDA-Public Use
  Company Number: US-BAYER-2019-059269

PATIENT
  Sex: Female

DRUGS (2)
  1. MIRENA [Suspect]
     Active Substance: LEVONORGESTREL
     Indication: MENORRHAGIA
  2. MIRENA [Suspect]
     Active Substance: LEVONORGESTREL
     Indication: MENORRHAGIA
     Dosage: 20 MCG/24HR, CONT
     Route: 015
     Dates: start: 20150119

REACTIONS (11)
  - Tinnitus [None]
  - Back pain [None]
  - Bacterial infection [Not Recovered/Not Resolved]
  - Urinary tract infection [Not Recovered/Not Resolved]
  - Musculoskeletal pain [None]
  - Fungal infection [Not Recovered/Not Resolved]
  - Visual impairment [None]
  - Medical device pain [None]
  - Migraine [None]
  - Medical device discomfort [None]
  - Neck pain [None]

NARRATIVE: CASE EVENT DATE: 2015
